FAERS Safety Report 5451847-4 (Version None)
Quarter: 2007Q3

REPORT INFORMATION
  Report Type: 
  Country: None (occurrence: None)
  Receive Date: 20070806
  Receipt Date: 20070515
  Transmission Date: 20080115
  Serious: Yes (Other)
  Sender: FDA-Public Use
  Company Number: 37218

PATIENT
  Age: 65 Year
  Sex: Male

DRUGS (2)
  1. MIDAZOLAM HCL [Suspect]
     Indication: SEDATION
     Dosage: 10 MG INTRAVENOUS
     Route: 042
     Dates: start: 20070508
  2. PREVACID [Concomitant]

REACTIONS (1)
  - DRUG INEFFECTIVE [None]
